FAERS Safety Report 4651992-7 (Version None)
Quarter: 2005Q2

REPORT INFORMATION
  Report Type: 
  Country: None (occurrence: None)
  Receive Date: 20050504
  Receipt Date: 20050420
  Transmission Date: 20051028
  Serious: No
  Sender: FDA-Public Use
  Company Number: 200511209JP

PATIENT
  Age: 35 Year
  Sex: Female
  Weight: 48 kg

DRUGS (3)
  1. ALLEGRA [Suspect]
     Indication: RHINITIS ALLERGIC
     Dosage: DOSE: 1 TABLET
     Route: 048
     Dates: start: 20050415
  2. ONON [Concomitant]
     Indication: RHINITIS ALLERGIC
     Dosage: DOSE: 2 CAPSULES
     Route: 048
     Dates: start: 20050416
  3. MUCOTRON [Concomitant]
     Indication: SINUSITIS
     Dosage: DOSE: 1 TABLET
     Route: 048
     Dates: start: 20050416

REACTIONS (6)
  - DIZZINESS [None]
  - HYPERSENSITIVITY [None]
  - NAUSEA [None]
  - SEDATION [None]
  - VISUAL DISTURBANCE [None]
  - VOMITING [None]
